FAERS Safety Report 10796121 (Version 1)
Quarter: 2015Q1

REPORT INFORMATION
  Report Type: Spontaneous
  Country: US (occurrence: US)
  Receive Date: 20150216
  Receipt Date: 20150216
  Transmission Date: 20150721
  Serious: No
  Sender: FDA-Public Use
  Company Number: US-BRISTOL-MYERS SQUIBB COMPANY-BMS-2015-009210

PATIENT
  Sex: Female
  Weight: 58.96 kg

DRUGS (1)
  1. SPRYCEL [Suspect]
     Active Substance: DASATINIB
     Indication: CHRONIC MYELOID LEUKAEMIA
     Dosage: 20 MG, BID
     Route: 065
     Dates: start: 201405

REACTIONS (4)
  - Thirst [Unknown]
  - Dehydration [Unknown]
  - Amnesia [Unknown]
  - Fatigue [Unknown]
